FAERS Safety Report 6973591-4 (Version None)
Quarter: 2010Q3

REPORT INFORMATION
  Report Type: 
  Country: None (occurrence: None)
  Receive Date: 20100909
  Receipt Date: 20100826
  Transmission Date: 20110219
  Serious: Yes (Death, Life-Threatening, Other)
  Sender: FDA-Public Use
  Company Number: DE-MYLANLABS-2009S1003551

PATIENT
  Age: 74 Year
  Sex: Male
  Weight: 125 kg

DRUGS (10)
  1. BISOPROLOL [Interacting]
     Indication: HYPERTENSION
     Route: 048
     Dates: start: 20050101, end: 20080927
  2. ENALAPRIL [Suspect]
     Indication: RENAL FAILURE
     Route: 048
     Dates: start: 20080101, end: 20080926
  3. ACTRAPHANE HM /00646002/ [Interacting]
     Indication: TYPE 2 DIABETES MELLITUS
     Dates: start: 20050101, end: 20080731
  4. ACTRAPHANE HM /00646002/ [Interacting]
     Dates: start: 20080801, end: 20080820
  5. ACTRAPHANE HM /00646002/ [Interacting]
     Dates: start: 20080821
  6. ALLOPURINOL [Concomitant]
     Indication: HYPERURICAEMIA
     Route: 048
     Dates: start: 20050101, end: 20080927
  7. ASPIRIN [Concomitant]
     Indication: PRODUCT USED FOR UNKNOWN INDICATION
     Route: 048
     Dates: start: 20050101, end: 20080927
  8. FUROSEMIDE [Concomitant]
     Indication: RENAL FAILURE
     Route: 048
     Dates: start: 20050101, end: 20080926
  9. SIMVASTATIN [Concomitant]
     Indication: HYPERLIPIDAEMIA
     Route: 048
     Dates: start: 20050101, end: 20080927
  10. XIPAMIDE [Concomitant]
     Indication: RENAL FAILURE
     Route: 048
     Dates: start: 20050101, end: 20080926

REACTIONS (3)
  - DRUG INTERACTION [None]
  - HYPOGLYCAEMIA [None]
  - RENAL FAILURE ACUTE [None]
